FAERS Safety Report 18574846 (Version 5)
Quarter: 2021Q3

REPORT INFORMATION
  Report Type: Report from Study
  Country: GH (occurrence: GH)
  Receive Date: 20201203
  Receipt Date: 20210709
  Transmission Date: 20211014
  Serious: Yes (Death, Hospitalization)
  Sender: FDA-Public Use
  Company Number: NVSC2020GH318968

PATIENT
  Age: 64 Year
  Sex: Female

DRUGS (2)
  1. UPERIO [Suspect]
     Active Substance: SACUBITRIL\VALSARTAN
     Indication: LEFT VENTRICULAR DYSFUNCTION
     Dosage: UNK
     Route: 065
     Dates: start: 202011
  2. UPERIO [Suspect]
     Active Substance: SACUBITRIL\VALSARTAN
     Indication: DIASTOLIC DYSFUNCTION

REACTIONS (5)
  - Oedema [Not Recovered/Not Resolved]
  - Oedema peripheral [Recovered/Resolved]
  - Product use in unapproved indication [Unknown]
  - Death [Fatal]
  - Localised oedema [Not Recovered/Not Resolved]

NARRATIVE: CASE EVENT DATE: 20210203
